FAERS Safety Report 20827740 (Version 2)
Quarter: 2022Q4

REPORT INFORMATION
  Report Type: Report from Study
  Country: US (occurrence: US)
  Receive Date: 20220513
  Receipt Date: 20221123
  Transmission Date: 20230113
  Serious: Yes (Other)
  Sender: FDA-Public Use
  Company Number: US-TAKEDA-US202003836

PATIENT
  Age: 62 Year
  Sex: Male

DRUGS (1)
  1. HUMAN IMMUNOGLOBULIN G [Suspect]
     Active Substance: HUMAN IMMUNOGLOBULIN G
     Indication: Primary immunodeficiency syndrome
     Dosage: 45 GRAM, MONTHLY
     Route: 042

REACTIONS (9)
  - Cytomegalovirus infection [Recovering/Resolving]
  - Synovial cyst [Unknown]
  - Feeling abnormal [Unknown]
  - Cancer fatigue [Unknown]
  - Glycosylated haemoglobin decreased [Unknown]
  - Blood immunoglobulin G decreased [Unknown]
  - Diarrhoea [Unknown]
  - Incorrect dose administered [Unknown]
  - Product availability issue [Unknown]

NARRATIVE: CASE EVENT DATE: 20200429
